FAERS Safety Report 6910167-9 (Version None)
Quarter: 2010Q3

REPORT INFORMATION
  Report Type: 
  Country: None (occurrence: None)
  Receive Date: 20100806
  Receipt Date: 20100802
  Transmission Date: 20110219
  Serious: Yes (Hospitalization, Other)
  Sender: FDA-Public Use
  Company Number: US-ASTRAZENECA-2007UW25295

PATIENT
  Age: 18847 Day
  Sex: Female
  Weight: 86.2 kg

DRUGS (22)
  1. SEROQUEL [Suspect]
     Indication: PSYCHOTIC DISORDER
     Route: 048
     Dates: start: 19980101, end: 20020101
  2. SEROQUEL [Suspect]
     Indication: SCHIZOPHRENIA, PARANOID TYPE
     Route: 048
     Dates: start: 19980101, end: 20020101
  3. SEROQUEL [Suspect]
     Indication: INSOMNIA
     Route: 048
     Dates: start: 19980101, end: 20020101
  4. SEROQUEL [Suspect]
     Route: 048
     Dates: start: 20040123, end: 20060501
  5. SEROQUEL [Suspect]
     Route: 048
     Dates: start: 20040123, end: 20060501
  6. SEROQUEL [Suspect]
     Route: 048
     Dates: start: 20040123, end: 20060501
  7. SEROQUEL [Suspect]
     Dosage: 25-450 MG DAILY
     Route: 048
     Dates: start: 20040204
  8. SEROQUEL [Suspect]
     Dosage: 25-450 MG DAILY
     Route: 048
     Dates: start: 20040204
  9. SEROQUEL [Suspect]
     Dosage: 25-450 MG DAILY
     Route: 048
     Dates: start: 20040204
  10. RISPERDAL [Concomitant]
     Indication: PSYCHOTIC DISORDER
     Dates: start: 19980701, end: 20030401
  11. RISPERDAL [Concomitant]
     Indication: SCHIZOPHRENIA, PARANOID TYPE
     Dates: start: 19980701, end: 20030401
  12. LISINOPRIL [Concomitant]
     Dosage: 10-40 MG DAILY
     Dates: start: 20050421
  13. CATAPRES [Concomitant]
     Dosage: 0.2-0.6 MG DAILY
     Dates: start: 20040206
  14. GLIPIZIDE [Concomitant]
     Dosage: 5-10 MG DAILY
     Dates: start: 20051023
  15. METOPROLOL [Concomitant]
     Dates: start: 20051023
  16. GEODON [Concomitant]
     Dosage: 40-60 MG DAILY
     Dates: start: 20050526, end: 20050501
  17. TRILEPTAL [Concomitant]
     Dosage: 300-600 MG DAILY
     Dates: start: 20051111
  18. ATIVAN [Concomitant]
     Dosage: 1 MG AS REQUIRED
     Dates: start: 20050421
  19. OSCAL [Concomitant]
     Dosage: 500-1000 MG DAILY
     Dates: start: 20050421
  20. ASPIRIN [Concomitant]
     Dates: start: 20050514
  21. LOPRESSOR [Concomitant]
     Dates: start: 20050421
  22. ABILIFY [Concomitant]
     Dates: end: 20040204

REACTIONS (17)
  - ACCELERATED HYPERTENSION [None]
  - BLOOD SODIUM DECREASED [None]
  - CHEST PAIN [None]
  - CONSTIPATION [None]
  - CONVULSION [None]
  - GASTROINTESTINAL DISORDER [None]
  - HEADACHE [None]
  - HYPERGLYCAEMIA [None]
  - HYPERLIPIDAEMIA [None]
  - HYPERTENSION [None]
  - HYPONATRAEMIA [None]
  - NASOPHARYNGITIS [None]
  - OBESITY [None]
  - SCHIZOPHRENIA [None]
  - SCHIZOPHRENIA, PARANOID TYPE [None]
  - SUICIDAL IDEATION [None]
  - TYPE 2 DIABETES MELLITUS [None]
